FAERS Safety Report 21770766 (Version 2)
Quarter: 2022Q4

REPORT INFORMATION
  Report Type: Report from Study
  Country: CA (occurrence: CA)
  Receive Date: 20221223
  Receipt Date: 20221226
  Transmission Date: 20230112
  Serious: Yes (Other)
  Sender: FDA-Public Use
  Company Number: CA-ABBVIE-4247659

PATIENT
  Age: 36 Year
  Sex: Female

DRUGS (1)
  1. RINVOQ [Suspect]
     Active Substance: UPADACITINIB
     Indication: Ankylosing spondylitis
     Dosage: THERAPY START DATE 16 DEC 2022 AND THERAPY END DATE DEC 2022
     Route: 048

REACTIONS (9)
  - Coma [Unknown]
  - Urine odour abnormal [Unknown]
  - Abdominal pain upper [Unknown]
  - Body temperature abnormal [Unknown]
  - Pyrexia [Unknown]
  - Suture insertion [Unknown]
  - Feeling cold [Unknown]
  - Back pain [Unknown]
  - Micturition frequency decreased [Unknown]

NARRATIVE: CASE EVENT DATE: 20221201
